FAERS Safety Report 24565682 (Version 2)
Quarter: 2024Q4

REPORT INFORMATION
  Report Type: Spontaneous
  Country: CN (occurrence: CN)
  Receive Date: 20241030
  Receipt Date: 20241105
  Transmission Date: 20250114
  Serious: Yes (Hospitalization, Other)
  Sender: NOVARTIS
  Company Number: CN-002147023-NVSC2024CN208236

PATIENT
  Age: 21 Year
  Sex: Male

DRUGS (1)
  1. TASIGNA [Suspect]
     Active Substance: NILOTINIB
     Indication: Chronic myeloid leukaemia
     Dosage: 150 MG
     Route: 048
     Dates: start: 20241010, end: 20241019

REACTIONS (10)
  - Pyrexia [Recovering/Resolving]
  - Rash [Recovering/Resolving]
  - Herpes virus infection [Not Recovered/Not Resolved]
  - Pneumonia [Recovering/Resolving]
  - Rales [Recovering/Resolving]
  - Vision blurred [Recovering/Resolving]
  - Multiple organ dysfunction syndrome [Recovering/Resolving]
  - Hepatic failure [Recovering/Resolving]
  - Coma [Unknown]
  - Full blood count abnormal [Unknown]

NARRATIVE: CASE EVENT DATE: 20241001
